FAERS Safety Report 4596478-3 (Version None)
Quarter: 2005Q1

REPORT INFORMATION
  Report Type: 
  Country: None (occurrence: None)
  Receive Date: 20050302
  Receipt Date: 20001030
  Transmission Date: 20050727
  Serious: Yes (Disabling)
  Sender: FDA-Public Use
  Company Number: PHBS2000JP10624

PATIENT
  Age: 71 Year
  Sex: Female

DRUGS (3)
  1. CLOTIAZEPAM [Suspect]
     Indication: DEPRESSION
     Route: 048
     Dates: start: 19960101
  2. ALPRAZOLAM (NGX) [Suspect]
     Indication: DEPRESSION
     Route: 048
     Dates: start: 19960101
  3. MAPROTILINE HYDROCHLORIDE [Suspect]
     Indication: DEPRESSION
     Route: 048
     Dates: start: 19960101

REACTIONS (13)
  - BLINDNESS [None]
  - CONJUNCTIVAL HYPERAEMIA [None]
  - CORNEAL OEDEMA [None]
  - EYE PAIN [None]
  - FLAT ANTERIOR CHAMBER OF EYE [None]
  - INTRAOCULAR PRESSURE INCREASED [None]
  - IRIS ATROPHY [None]
  - LENTICULAR OPACITIES [None]
  - MYDRIASIS [None]
  - OPTIC NERVE CUPPING [None]
  - PUPILLARY REFLEX IMPAIRED [None]
  - VISION BLURRED [None]
  - VISUAL ACUITY REDUCED [None]
